FAERS Safety Report 4846138-6 (Version None)
Quarter: 2005Q4

REPORT INFORMATION
  Report Type: 
  Country: None (occurrence: None)
  Receive Date: 20051202
  Receipt Date: 20051202
  Transmission Date: 20060501
  Serious: Yes (Life-Threatening, Hospitalization)
  Sender: FDA-Public Use
  Company Number: None

PATIENT
  Age: 70 Year
  Sex: Male
  Weight: 77.1115 kg

DRUGS (2)
  1. DESMOPRESSIN .2 MG AVENTIS [Suspect]
     Indication: PROSTATE EXAMINATION ABNORMAL
     Dosage: 1 TABLET BY MOUTH DAILY
     Dates: start: 20050330, end: 20050831
  2. CHLORTHALIDONE [Suspect]
     Indication: HYPERTENSION
     Dosage: 1/2 TABLET BY MOUTH DAILY
     Dates: start: 20030603, end: 20050831

REACTIONS (4)
  - BLOOD SODIUM DECREASED [None]
  - DRUG INTERACTION [None]
  - GRAND MAL CONVULSION [None]
  - LOSS OF CONSCIOUSNESS [None]
